FAERS Safety Report 5624106-4 (Version None)
Quarter: 2008Q1

REPORT INFORMATION
  Report Type: 
  Country: None (occurrence: None)
  Receive Date: 20080213
  Receipt Date: 20071106
  Transmission Date: 20080703
  Serious: No
  Sender: FDA-Public Use
  Company Number: US-KINGPHARMUSA00001-K200701433

PATIENT

DRUGS (2)
  1. EPIPEN [Suspect]
     Indication: HYPERSENSITIVITY
     Dosage: 0.3 MG, TWO PENS WITHIN ONE WEEK
  2. PROVIGIL [Concomitant]
     Dates: end: 20071017

REACTIONS (1)
  - ANXIETY [None]
